FAERS Safety Report 5606253-6 (Version None)
Quarter: 2008Q1

REPORT INFORMATION
  Report Type: 
  Country: None (occurrence: None)
  Receive Date: 20080129
  Receipt Date: 20070524
  Transmission Date: 20080703
  Serious: No
  Sender: FDA-Public Use
  Company Number: A0644695A

PATIENT
  Sex: Female

DRUGS (2)
  1. WELLBUTRIN [Suspect]
     Indication: DRUG USE FOR UNKNOWN INDICATION
     Route: 048
     Dates: start: 20020604
  2. PAXIL [Suspect]
     Indication: DRUG USE FOR UNKNOWN INDICATION
     Route: 065

REACTIONS (3)
  - EAR PAIN [None]
  - HYPERHIDROSIS [None]
  - TINNITUS [None]
